FAERS Safety Report 16277794 (Version 1)
Quarter: 2019Q2

REPORT INFORMATION
  Report Type: Spontaneous
  Country: BR (occurrence: BR)
  Receive Date: 20190506
  Receipt Date: 20190506
  Transmission Date: 20190711
  Serious: Yes (Other)
  Sender: FDA-Public Use
  Company Number: BR-FRESENIUS KABI-FK201905144

PATIENT

DRUGS (1)
  1. AMIKACIN (MANUFACTURER UNKNOWN) [Suspect]
     Active Substance: AMIKACIN
     Indication: INFECTION
     Route: 065

REACTIONS (2)
  - Graft loss [Unknown]
  - Nephropathy toxic [Unknown]
